FAERS Safety Report 5714928-3 (Version None)
Quarter: 2008Q2

REPORT INFORMATION
  Report Type: 
  Country: None (occurrence: None)
  Receive Date: 20080423
  Receipt Date: 20080418
  Transmission Date: 20081010
  Serious: Yes (Hospitalization)
  Sender: FDA-Public Use
  Company Number: DE-ASTRAZENECA-2008PK00829

PATIENT
  Age: 59 Year
  Sex: Male

DRUGS (10)
  1. BELOC-ZOK [Suspect]
     Route: 048
     Dates: start: 20060120, end: 20060206
  2. BELOC-ZOK [Interacting]
     Route: 048
     Dates: start: 20060207
  3. DELIX [Interacting]
     Dates: start: 20060120
  4. ESIDRIX [Interacting]
     Dates: start: 20060120
  5. TOREM [Interacting]
     Dates: start: 20060120
  6. CITALOPRAM HYDROBROMIDE [Interacting]
     Dates: start: 20060128
  7. REMERGIL [Interacting]
     Dates: start: 20060127
  8. SORTIS [Concomitant]
     Route: 048
     Dates: start: 20060120
  9. MARCUMAR [Concomitant]
     Dosage: ACCORDING TO QUICK VALUE
     Route: 048
     Dates: start: 20060120
  10. DIGIMERCK [Concomitant]
     Dates: start: 20060120

REACTIONS (3)
  - DIZZINESS [None]
  - DRUG INTERACTION [None]
  - HYPOTENSION [None]
